FAERS Safety Report 7676192-8 (Version None)
Quarter: 2011Q3

REPORT INFORMATION
  Report Type: 
  Country: None (occurrence: None)
  Receive Date: 20110805
  Receipt Date: 20110722
  Transmission Date: 20111222
  Serious: Yes (Other)
  Sender: FDA-Public Use
  Company Number: 2011P1007924

PATIENT
  Age: 49 Year
  Sex: Female
  Weight: 49.8957 kg

DRUGS (4)
  1. FENTANYL [Suspect]
     Indication: PAIN
     Dosage: 1 PATCH;Q72H;TDER
     Route: 062
     Dates: start: 20110715
  2. PREMARIN [Concomitant]
  3. ZYRTEC [Concomitant]
  4. FENTANYL CITRATE [Suspect]
     Indication: PAIN
     Dosage: 1 PATCH;Q72H;TDER
     Route: 062
     Dates: start: 20110715

REACTIONS (5)
  - SWELLING [None]
  - SKIN HAEMORRHAGE [None]
  - PRURITUS [None]
  - SWELLING FACE [None]
  - RASH ERYTHEMATOUS [None]
